FAERS Safety Report 10228617 (Version 6)
Quarter: 2015Q3

REPORT INFORMATION
  Report Type: Report from Study
  Country: FR (occurrence: FR)
  Receive Date: 20140610
  Receipt Date: 20150929
  Transmission Date: 20151125
  Serious: Yes (Hospitalization)
  Sender: FDA-Public Use
  Company Number: FR-JNJFOC-20140602256

PATIENT
  Age: 65 Year
  Sex: Male
  Weight: 57 kg

DRUGS (17)
  1. IBRUTINIB [Suspect]
     Active Substance: IBRUTINIB
     Indication: B-CELL LYMPHOMA
     Route: 048
     Dates: start: 20140526, end: 20140529
  2. EUPANTOL [Concomitant]
     Active Substance: PANTOPRAZOLE SODIUM
     Dates: start: 20140522
  3. SKENAN [Concomitant]
     Active Substance: MORPHINE SULFATE
  4. POLARAMIN [Concomitant]
     Active Substance: DEXCHLORPHENIRAMINE MALEATE
     Dates: start: 20140526, end: 20140526
  5. FASTURTEC [Concomitant]
     Active Substance: RASBURICASE
     Dates: start: 20140526, end: 20140526
  6. EMEND [Concomitant]
     Active Substance: APREPITANT
     Indication: PROPHYLAXIS OF NAUSEA AND VOMITING
     Dates: start: 20140526, end: 20140526
  7. RITUXIMAB [Suspect]
     Active Substance: RITUXIMAB
     Indication: B-CELL LYMPHOMA
     Route: 042
     Dates: start: 20140526
  8. LOVENOX [Concomitant]
     Active Substance: ENOXAPARIN SODIUM
     Indication: THROMBOSIS PROPHYLAXIS
  9. CISPLATIN. [Suspect]
     Active Substance: CISPLATIN
     Indication: B-CELL LYMPHOMA
     Route: 042
     Dates: start: 20130526
  10. CYTARABINE. [Suspect]
     Active Substance: CYTARABINE
     Indication: B-CELL LYMPHOMA
     Route: 042
     Dates: start: 20140526
  11. STILNOX [Concomitant]
     Active Substance: ZOLPIDEM TARTRATE
     Indication: INSOMNIA
  12. ZOPHREN [Concomitant]
     Active Substance: ONDANSETRON
     Dates: start: 20140526, end: 20140527
  13. DEXAMETHASONE. [Suspect]
     Active Substance: DEXAMETHASONE
     Indication: B-CELL LYMPHOMA
     Route: 042
     Dates: start: 20140526
  14. SOLUPRED [Concomitant]
     Active Substance: PREDNISOLONE
     Indication: LYMPHOMA
  15. DAFALGAN [Concomitant]
     Active Substance: ACETAMINOPHEN
     Indication: PAIN
     Dates: end: 20140524
  16. TRANSIPEG [Concomitant]
     Active Substance: POLYETHYLENE GLYCOL 3350
     Indication: CONSTIPATION
  17. EMEND [Concomitant]
     Active Substance: APREPITANT
     Indication: PROPHYLAXIS OF NAUSEA AND VOMITING
     Dates: start: 20140527, end: 20140528

REACTIONS (1)
  - Dysphagia [Recovered/Resolved]

NARRATIVE: CASE EVENT DATE: 20140529
